FAERS Safety Report 26143922 (Version 1)
Quarter: 2025Q4

REPORT INFORMATION
  Report Type: Report from Study
  Country: US (occurrence: US)
  Receive Date: 20251211
  Receipt Date: 20251211
  Transmission Date: 20260118
  Serious: Yes (Other)
  Sender: RANBAXY
  Company Number: US-SUN PHARMACEUTICAL INDUSTRIES LTD-2025R1-532382

PATIENT
  Age: 2 Year
  Sex: Female

DRUGS (2)
  1. CILOSTAZOL [Suspect]
     Active Substance: CILOSTAZOL
     Indication: Moyamoya disease
     Dosage: 50 MILLIGRAM, QD
     Route: 065
  2. ASPIRIN [Suspect]
     Active Substance: ASPIRIN
     Indication: Product used for unknown indication
     Dosage: 3-5 MG PER KG PER DAY UP TO 81 MG PER DAY
     Route: 065

REACTIONS (1)
  - Cerebrovascular accident [Recovering/Resolving]
